FAERS Safety Report 8392729-8 (Version None)
Quarter: 2012Q2

REPORT INFORMATION
  Report Type: 
  Country: None (occurrence: None)
  Receive Date: 20120529
  Receipt Date: 20120525
  Transmission Date: 20120825
  Serious: Yes (Death, Hospitalization)
  Sender: FDA-Public Use
  Company Number: KR-ABBOTT-10P-090-0655788-00

PATIENT
  Age: 65 Year
  Sex: Male

DRUGS (12)
  1. AZT(ZDV) [Concomitant]
     Indication: ANTIRETROVIRAL THERAPY
     Dosage: 600 MG, DAILY
     Route: 048
     Dates: start: 20091112, end: 20100518
  2. MEGACE SUSPENSION 40MG/240ML [Concomitant]
     Indication: DECREASED APPETITE
     Dosage: 10 ML, DAILY
     Route: 048
     Dates: start: 20100401, end: 20100514
  3. CJ 20% DEXTROSE WATER 0.2G/ML 1000ML [Concomitant]
     Indication: MEDICAL DIET
     Dosage: 1 LITER, DAILY
     Route: 042
     Dates: start: 20100517, end: 20100524
  4. ABC [Concomitant]
     Indication: PRODUCT USED FOR UNKNOWN INDICATION
     Dosage: 600 MG, DAILY
     Route: 048
     Dates: start: 20100519, end: 20100601
  5. TS TAB [Concomitant]
     Indication: ANTIFUNGAL PROPHYLAXIS
     Dosage: 1 TAB, DAILY
     Route: 048
     Dates: start: 20091112, end: 20100401
  6. CEBATRIM INJ [Concomitant]
     Indication: ANTIFUNGAL PROPHYLAXIS
     Dosage: 4 VIAL DAILY
     Route: 042
     Dates: start: 20100601, end: 20100602
  7. DAPSONE [Concomitant]
     Indication: ANTIFUNGAL PROPHYLAXIS
     Dosage: 100MG X 1 TABLET DAILY
     Route: 048
     Dates: start: 20100401, end: 20100517
  8. ZIAGEN [Concomitant]
     Indication: HIV INFECTION
     Dosage: 2 TABLETS, DAILY
     Route: 048
     Dates: start: 20100518, end: 20100601
  9. KALETRA [Suspect]
     Indication: PRODUCT USED FOR UNKNOWN INDICATION
     Dates: start: 20091112, end: 20100601
  10. NORPINE [Concomitant]
     Indication: BLOOD PRESSURE INCREASED
     Dosage: 40 MG/240ML, DAILY
     Route: 042
     Dates: start: 20100602, end: 20100608
  11. COMBIVIR [Concomitant]
     Indication: HIV INFECTION
     Dosage: 2 TABLETS, DAILY
     Route: 048
     Dates: start: 20091112, end: 20100518
  12. LAMIVUDINE (EPIVIR HBV) [Concomitant]
     Indication: PRODUCT USED FOR UNKNOWN INDICATION
     Dosage: 30 MG, DAILY
     Route: 048
     Dates: start: 20091112, end: 20100601

REACTIONS (13)
  - BONE MARROW FAILURE [None]
  - HAEMOGLOBIN DECREASED [None]
  - DIARRHOEA [None]
  - RENAL FAILURE [None]
  - SEPSIS [None]
  - HEPATIC FAILURE [None]
  - LEUKOPENIA [None]
  - DIZZINESS [None]
  - WHITE BLOOD CELL COUNT DECREASED [None]
  - PNEUMONIA [None]
  - ANAEMIA [None]
  - DECREASED APPETITE [None]
  - DIARRHOEA INFECTIOUS [None]
